FAERS Safety Report 5290396-3 (Version None)
Quarter: 2007Q2

REPORT INFORMATION
  Report Type: 
  Country: None (occurrence: None)
  Receive Date: 20070409
  Receipt Date: 20070330
  Transmission Date: 20071010
  Serious: Yes (Hospitalization)
  Sender: FDA-Public Use
  Company Number: US-JNJFOC-20070204530

PATIENT
  Sex: Female
  Weight: 83.01 kg

DRUGS (2)
  1. ORTHO EVRA [Suspect]
     Indication: CONTRACEPTION
     Route: 062
  2. ZYRTEC [Concomitant]
     Indication: MULTIPLE ALLERGIES

REACTIONS (1)
  - PULMONARY EMBOLISM [None]
